FAERS Safety Report 26071668 (Version 1)
Quarter: 2025Q4

REPORT INFORMATION
  Report Type: Report from Study
  Country: US (occurrence: US)
  Receive Date: 20251120
  Receipt Date: 20251120
  Transmission Date: 20260117
  Serious: Yes (Other)
  Sender: ALEXION PHARMACEUTICALS
  Company Number: US-ASTRAZENECA-202511NAM013900US

PATIENT
  Age: 40 Year
  Sex: Female

DRUGS (1)
  1. STRENSIQ [Suspect]
     Active Substance: ASFOTASE ALFA
     Indication: Phosphorus metabolism disorder
     Dosage: 2 MILLIGRAM/KILOGRAM, Q3W
     Route: 065

REACTIONS (26)
  - Polyarthritis [Unknown]
  - Pain [Unknown]
  - Muscle spasms [Unknown]
  - Restless legs syndrome [Unknown]
  - Pain in extremity [Unknown]
  - Dry eye [Unknown]
  - Dry mouth [Unknown]
  - Mouth ulceration [Unknown]
  - Palpitations [Unknown]
  - Cough [Unknown]
  - Joint swelling [Unknown]
  - Arthralgia [Unknown]
  - Musculoskeletal stiffness [Unknown]
  - Myalgia [Unknown]
  - Fatigue [Unknown]
  - Pyrexia [Unknown]
  - Inflammatory pain [Unknown]
  - Fibromyalgia [Unknown]
  - Inflammation [Unknown]
  - Tenderness [Unknown]
  - Depression [Unknown]
  - Gastrooesophageal reflux disease [Unknown]
  - Mitral valve prolapse [Unknown]
  - Infection [Unknown]
  - Acute sinusitis [Unknown]
  - Neuralgia [Unknown]
